FAERS Safety Report 12297811 (Version 2)
Quarter: 2016Q2

REPORT INFORMATION
  Report Type: Spontaneous
  Country: US (occurrence: US)
  Receive Date: 20160422
  Receipt Date: 20160511
  Transmission Date: 20160815
  Serious: Yes (Other)
  Sender: FDA-Public Use
  Company Number: US-PFIZER INC-2016219146

PATIENT
  Age: 33 Year
  Sex: Female
  Weight: 84 kg

DRUGS (6)
  1. COLISTIN [Suspect]
     Active Substance: COLISTIN
     Indication: ACINETOBACTER INFECTION
     Dosage: 75 MG, EVERY 12 H, (NEBULIZED)
     Route: 055
  2. METHYLPREDNISOLONE. [Suspect]
     Active Substance: METHYLPREDNISOLONE
     Indication: ACINETOBACTER INFECTION
     Dosage: UNK
     Route: 048
  3. HYDROMORPHONE [Suspect]
     Active Substance: HYDROMORPHONE
     Indication: PAIN
     Dosage: 0.5 MG, AS NEEDED
     Route: 042
  4. COLISTIN [Suspect]
     Active Substance: COLISTIN
     Indication: ACINETOBACTER INFECTION
     Dosage: 170 MG, 2X/DAY (EVERY 12H)
     Route: 042
  5. GANCICLOVIR. [Concomitant]
     Active Substance: GANCICLOVIR
     Dosage: UNK
  6. AMPICILLIN SODIUM/SULBACTAM SODIUM [Suspect]
     Active Substance: AMPICILLIN SODIUM\SULBACTAM SODIUM
     Indication: ACINETOBACTER INFECTION
     Dosage: UNK
     Route: 042

REACTIONS (4)
  - Neuromuscular toxicity [Recovering/Resolving]
  - Respiratory failure [Recovering/Resolving]
  - Apnoea [Recovering/Resolving]
  - Myopathy [Unknown]
